FAERS Safety Report 4717735-3 (Version None)
Quarter: 2005Q3

REPORT INFORMATION
  Report Type: 
  Country: None (occurrence: None)
  Receive Date: 20050714
  Receipt Date: 20050117
  Transmission Date: 20060218
  Serious: No
  Sender: FDA-Public Use
  Company Number: 05P-163-0287613-00

PATIENT
  Sex: Female

DRUGS (3)
  1. ULTANE [Suspect]
     Indication: ANAESTHESIA
     Dosage: 1.7-1.8%, INHALATION
     Route: 055
     Dates: start: 20050117, end: 20050117
  2. NITROUS OXIDE [Concomitant]
  3. OXYGEN [Concomitant]

REACTIONS (1)
  - LIGHT ANAESTHESIA [None]
